FAERS Safety Report 15508185 (Version 2)
Quarter: 2018Q4

REPORT INFORMATION
  Report Type: Report from Study
  Country: CO (occurrence: CO)
  Receive Date: 20181016
  Receipt Date: 20181101
  Transmission Date: 20190205
  Serious: Yes (Death, Hospitalization, Other)
  Sender: FDA-Public Use
  Company Number: CO-BAYER-2018-174690

PATIENT
  Age: 43 Year
  Sex: Female

DRUGS (1)
  1. ADEMPAS [Suspect]
     Active Substance: RIOCIGUAT
     Indication: PULMONARY HYPERTENSION
     Dosage: 2.5 MG, TID
     Route: 048
     Dates: start: 20170616, end: 20181011

REACTIONS (5)
  - Dyspnoea [Not Recovered/Not Resolved]
  - Hospitalisation [None]
  - Respiratory arrest [Fatal]
  - Pulmonary thrombosis [None]
  - Obstructive airways disorder [None]

NARRATIVE: CASE EVENT DATE: 20180913
